FAERS Safety Report 14094812 (Version 1)
Quarter: 2017Q4

REPORT INFORMATION
  Report Type: Spontaneous
  Country: US (occurrence: US)
  Receive Date: 20171016
  Receipt Date: 20171016
  Transmission Date: 20180321
  Serious: No
  Sender: FDA-Public Use
  Company Number: US-AMGEN-USASP2017153396

PATIENT
  Age: 25 Year
  Sex: Female

DRUGS (1)
  1. CORLANOR [Suspect]
     Active Substance: IVABRADINE HYDROCHLORIDE
     Indication: SINUS TACHYCARDIA
     Dosage: 5 MG, BID
     Route: 065
     Dates: start: 201707

REACTIONS (4)
  - Off label use [Unknown]
  - Heart rate abnormal [Unknown]
  - Product supply issue [Unknown]
  - Migraine [Unknown]

NARRATIVE: CASE EVENT DATE: 2017
